FAERS Safety Report 25679116 (Version 1)
Quarter: 2025Q3

REPORT INFORMATION
  Report Type: Spontaneous
  Country: GB (occurrence: GB)
  Receive Date: 20250814
  Receipt Date: 20250814
  Transmission Date: 20251020
  Serious: Yes (Other)
  Sender: AUROBINDO
  Company Number: GB-MHRA-MED-202508011637139660-GFKMN

PATIENT
  Age: 60 Year
  Sex: Female

DRUGS (2)
  1. ACYCLOVIR [Suspect]
     Active Substance: ACYCLOVIR
     Indication: Herpes zoster
     Dosage: 800 MILLIGRAM, 5 TIMES A DAY
     Route: 065
     Dates: start: 20250724
  2. ACETAMINOPHEN [Concomitant]
     Active Substance: ACETAMINOPHEN
     Indication: Product used for unknown indication
     Route: 065

REACTIONS (4)
  - Decreased appetite [Recovered/Resolved]
  - Anxiety [Recovered/Resolved]
  - Head discomfort [Recovered/Resolved]
  - Discomfort [Recovered/Resolved]
